FAERS Safety Report 12101713 (Version 1)
Quarter: 2016Q1

REPORT INFORMATION
  Report Type: Spontaneous
  Country: US (occurrence: US)
  Receive Date: 20160222
  Receipt Date: 20160222
  Transmission Date: 20160526
  Serious: No
  Sender: FDA-Public Use
  Company Number: US-HERITAGE PHARMACEUTICALS-2015HTG00094

PATIENT
  Sex: Female
  Weight: 73.47 kg

DRUGS (2)
  1. FELODIPINE. [Suspect]
     Active Substance: FELODIPINE
     Indication: BLOOD PRESSURE ABNORMAL
     Dosage: 2.5 MG, UNK
     Dates: start: 201511, end: 20151208
  2. FELODIPINE. [Suspect]
     Active Substance: FELODIPINE
     Dosage: 5 MG, UNK
     Dates: start: 20151209

REACTIONS (2)
  - Drug ineffective [Unknown]
  - Swelling [Unknown]

NARRATIVE: CASE EVENT DATE: 2015
